FAERS Safety Report 24650105 (Version 1)
Quarter: 2024Q4

REPORT INFORMATION
  Report Type: Spontaneous
  Country: JP (occurrence: JP)
  Receive Date: 20241122
  Receipt Date: 20241122
  Transmission Date: 20250115
  Serious: Yes (Death, Other)
  Sender: BOEHRINGER INGELHEIM
  Company Number: JP-NBI-2024-BI-063569

PATIENT
  Age: 68 Year
  Sex: Female

DRUGS (2)
  1. GILOTRIF [Suspect]
     Active Substance: AFATINIB
     Indication: Lung adenocarcinoma
     Dosage: DAILY DOSE: 40 MILLIGRAM(S)
  2. GILOTRIF [Suspect]
     Active Substance: AFATINIB
     Dates: start: 2018

REACTIONS (4)
  - Metastases to central nervous system [Fatal]
  - Metastases to liver [Fatal]
  - Myelodysplastic syndrome [Unknown]
  - Pancytopenia [Unknown]

NARRATIVE: CASE EVENT DATE: 20190101
